FAERS Safety Report 21968902 (Version 1)
Quarter: 2023Q1

REPORT INFORMATION
  Report Type: Spontaneous
  Country: US (occurrence: None)
  Receive Date: 20230207
  Receipt Date: 20230207
  Transmission Date: 20230418
  Serious: Yes (Other)
  Sender: FDA-Public Use
  Company Number: None

PATIENT
  Age: 34 Year
  Sex: Female
  Weight: 133.2 kg

DRUGS (3)
  1. MYFEMBREE [Suspect]
     Active Substance: ESTRADIOL HEMIHYDRATE\NORETHINDRONE ACETATE\RELUGOLIX
     Indication: Uterine leiomyoma
     Dosage: FREQUENCY : DAILY;?
     Route: 048
     Dates: start: 20221213, end: 20230207
  2. SLYND [Concomitant]
     Active Substance: DROSPIRENONE
     Dates: start: 20230206
  3. INFED SOLN [Concomitant]

REACTIONS (2)
  - Pain [None]
  - Haemorrhage [None]

NARRATIVE: CASE EVENT DATE: 20230207
